FAERS Safety Report 9221484 (Version 1)
Quarter: 2013Q1

REPORT INFORMATION
  Report Type: Spontaneous
  Country: US (occurrence: None)
  Receive Date: 20120831
  Receipt Date: 20120831
  Transmission Date: 20140127
  Serious: No
  Sender: FDA-Public Use
  Company Number: 1000031021

PATIENT
  Age: 85 Year
  Sex: Female

DRUGS (10)
  1. DALIRESP [Suspect]
     Indication: CHRONIC OBSTRUCTIVE PULMONARY DISEASE
     Route: 048
     Dates: start: 201205, end: 201205
  2. DILTIZEM [Concomitant]
  3. METFORMIN [Concomitant]
  4. RYTHMOL [Concomitant]
  5. LIPITOR [Concomitant]
  6. ASIPRIN [Concomitant]
  7. HYDROCHLOROTHIAZIDE [Concomitant]
  8. IRON [Concomitant]
  9. ALBUTEROL [Concomitant]
  10. ATROVENT [Concomitant]

REACTIONS (6)
  - Diarrhoea [None]
  - Nausea [None]
  - Headache [None]
  - Back pain [None]
  - Decreased appetite [None]
  - Cough [None]
